FAERS Safety Report 25741337 (Version 1)
Quarter: 2025Q3

REPORT INFORMATION
  Report Type: Spontaneous
  Country: US (occurrence: US)
  Receive Date: 20250829
  Receipt Date: 20250829
  Transmission Date: 20251021
  Serious: No
  Sender: SANDOZ
  Company Number: US-SANDOZ-SDZ2025US059645

PATIENT

DRUGS (1)
  1. ALBUTEROL SULFATE [Suspect]
     Active Substance: ALBUTEROL SULFATE
     Indication: Product used for unknown indication
     Route: 055

REACTIONS (4)
  - Device difficult to use [Unknown]
  - Circumstance or information capable of leading to medication error [Unknown]
  - Device delivery system issue [Unknown]
  - Device failure [Unknown]

NARRATIVE: CASE EVENT DATE: 20250815
